FAERS Safety Report 13312485 (Version 1)
Quarter: 2017Q1

REPORT INFORMATION
  Report Type: Spontaneous
  Country: FR (occurrence: FR)
  Receive Date: 20170309
  Receipt Date: 20170309
  Transmission Date: 20170428
  Serious: Yes (Hospitalization)
  Sender: FDA-Public Use
  Company Number: FR-TEVA-747389ROM

PATIENT
  Age: 71 Year
  Sex: Male

DRUGS (20)
  1. DUPHALAC [Concomitant]
     Active Substance: LACTULOSE
  2. PRIMPERAN [Suspect]
     Active Substance: METOCLOPRAMIDE HYDROCHLORIDE
     Dosage: 3 DOSAGE FORMS DAILY;
     Route: 048
     Dates: start: 20161224, end: 20170119
  3. POLARAMINE [Concomitant]
     Active Substance: DEXCHLORPHENIRAMINE MALEATE
  4. PANTOPRAZOLE SODIUM. [Suspect]
     Active Substance: PANTOPRAZOLE SODIUM
     Route: 048
     Dates: end: 20170119
  5. LOVENOX [Concomitant]
     Active Substance: ENOXAPARIN SODIUM
  6. NEFOPAM [Concomitant]
     Active Substance: NEFOPAM
  7. PANTOPRAZOLE SODIUM. [Suspect]
     Active Substance: PANTOPRAZOLE SODIUM
     Dosage: FOR 2 DAYS
     Route: 042
     Dates: start: 20161225
  8. QUESTRAN [Suspect]
     Active Substance: CHOLESTYRAMINE
     Dosage: 1 DOSAGE FORMS DAILY;
     Route: 048
     Dates: start: 20161216, end: 20170119
  9. TRAMADOL/PARACETAMOL MYLAN 37.5/325 MG [Suspect]
     Active Substance: ACETAMINOPHEN\TRAMADOL
     Dosage: 8 DOSAGE FORMS DAILY;
     Route: 048
     Dates: start: 20161201, end: 20170119
  10. RACECADOTRIL BIOGARAN 100 MG [Suspect]
     Active Substance: RACECADOTRIL
     Dosage: 3 DOSAGE FORMS DAILY;
     Route: 048
     Dates: start: 20161209, end: 20170119
  11. LOPERAMIDE ARROW [Concomitant]
     Active Substance: LOPERAMIDE
  12. FUROSEMIDE ARROW [Concomitant]
     Active Substance: FUROSEMIDE
  13. ULTRAVIST [Suspect]
     Active Substance: IOPROMIDE
     Indication: COMPUTERISED TOMOGRAM
     Route: 042
     Dates: start: 20170116, end: 20170116
  14. CUBICIN [Suspect]
     Active Substance: DAPTOMYCIN
     Dosage: 800 MILLIGRAM DAILY;
     Route: 042
     Dates: start: 20170110, end: 20170201
  15. SYMBICORT [Suspect]
     Active Substance: BUDESONIDE\FORMOTEROL FUMARATE DIHYDRATE
     Dosage: 1 DOSAGE FORMS DAILY; INHALATION
     Route: 055
     Dates: start: 20161220, end: 20170119
  16. DIFFU K [Concomitant]
     Active Substance: POTASSIUM CHLORIDE
  17. KARDEGIC [Concomitant]
     Active Substance: ASPIRIN LYSINE
  18. UMULINE [Concomitant]
     Active Substance: INSULIN HUMAN
  19. LANTUS [Concomitant]
     Active Substance: INSULIN GLARGINE
  20. PIPERACILLIN AND TAZOBACTAM [Suspect]
     Active Substance: PIPERACILLIN SODIUM\TAZOBACTAM SODIUM
     Indication: SKIN INFECTION
     Dosage: 3 DOSAGE FORMS DAILY;
     Route: 042
     Dates: start: 20161204, end: 20170130

REACTIONS (2)
  - Dyspnoea [Not Recovered/Not Resolved]
  - Diffuse alveolar damage [Not Recovered/Not Resolved]

NARRATIVE: CASE EVENT DATE: 20170117
